FAERS Safety Report 8996586 (Version 1)
Quarter: 2013Q1

REPORT INFORMATION
  Report Type: Other
  Country: US (occurrence: US)
  Receive Date: 20130104
  Receipt Date: 20130104
  Transmission Date: 20140127
  Serious: Yes (Death)
  Sender: FDA-Public Use
  Company Number: US-SHIRE-ALL1-2012-04450

PATIENT
  Sex: Female

DRUGS (1)
  1. PENTASA [Suspect]
     Indication: PRODUCT USED FOR UNKNOWN INDICATION
     Dosage: 500 MG, UNKNOWN (500MG THREE TO FOUR TIMES DAILY)
     Dates: start: 201011

REACTIONS (5)
  - Intestinal obstruction [Fatal]
  - Intestinal perforation [Fatal]
  - Sepsis [Fatal]
  - Respiratory failure [Fatal]
  - Treatment noncompliance [Unknown]
